FAERS Safety Report 10924432 (Version 1)
Quarter: 2015Q1

REPORT INFORMATION
  Report Type: Spontaneous
  Country: None (occurrence: None)
  Receive Date: 20150316
  Receipt Date: 20150316
  Transmission Date: 20150721
  Serious: Yes (Life-Threatening, Hospitalization)
  Sender: FDA-Public Use
  Company Number: None

PATIENT
  Age: 71 Year
  Sex: Female

DRUGS (12)
  1. GABAPENTIN. [Concomitant]
     Active Substance: GABAPENTIN
  2. CARAVEDILOL [Concomitant]
  3. LIPITOR [Concomitant]
     Active Substance: ATORVASTATIN CALCIUM
  4. BELVIQ [Suspect]
     Active Substance: LORCASERIN HYDROCHLORIDE
     Indication: WEIGHT DECREASED
     Dates: start: 20150302, end: 20150307
  5. FUROSEMIDE. [Concomitant]
     Active Substance: FUROSEMIDE
  6. LEVEMIR [Concomitant]
     Active Substance: INSULIN DETEMIR
  7. ARIMIDEX [Concomitant]
     Active Substance: ANASTROZOLE
  8. SYNTHROID [Concomitant]
     Active Substance: LEVOTHYROXINE SODIUM
  9. VALSARTAN HCL [Concomitant]
  10. VICTOZA [Concomitant]
     Active Substance: LIRAGLUTIDE
  11. FOLTANX [Concomitant]
  12. CLOPIDOGREL [Concomitant]
     Active Substance: CLOPIDOGREL BISULFATE

REACTIONS (6)
  - Arthralgia [None]
  - Blood glucose decreased [None]
  - Slow speech [None]
  - Lethargy [None]
  - Loss of consciousness [None]
  - Fatigue [None]

NARRATIVE: CASE EVENT DATE: 20150307
